FAERS Safety Report 17451228 (Version 1)
Quarter: 2020Q1

REPORT INFORMATION
  Report Type: Spontaneous
  Country: FR (occurrence: FR)
  Receive Date: 20200224
  Receipt Date: 20200224
  Transmission Date: 20200409
  Serious: Yes (Other)
  Sender: FDA-Public Use
  Company Number: FR-PFIZER INC-2020075044

PATIENT
  Age: 4 Year
  Sex: Male
  Weight: 18 kg

DRUGS (3)
  1. AMLOR [Suspect]
     Active Substance: AMLODIPINE BESYLATE
     Indication: HYPERTENSION
     Dosage: 5 MG, DAILY
     Route: 048
     Dates: start: 201801
  2. STEROGYL [Suspect]
     Active Substance: ERGOCALCIFEROL
     Indication: VITAMIN SUPPLEMENTATION
     Dosage: 3 GTT, 1X/DAY
     Route: 048
     Dates: start: 201506
  3. FERROSTRANE [Suspect]
     Active Substance: SODIUM FEREDETATE
     Indication: BLOOD IRON DECREASED
     Dosage: 10 ML, 1X/DAY
     Route: 048
     Dates: start: 20170126

REACTIONS (2)
  - Behaviour disorder [Not Recovered/Not Resolved]
  - Agitation [Not Recovered/Not Resolved]

NARRATIVE: CASE EVENT DATE: 20190901
